FAERS Safety Report 5874319-1 (Version None)
Quarter: 2008Q3

REPORT INFORMATION
  Report Type: 
  Country: None (occurrence: None)
  Receive Date: 20080908
  Receipt Date: 20080827
  Transmission Date: 20090109
  Serious: No
  Sender: FDA-Public Use
  Company Number: GB-ELI_LILLY_AND_COMPANY-GB200808006366

PATIENT
  Age: 12 Year
  Sex: Male

DRUGS (2)
  1. ZYPREXA [Suspect]
     Dosage: 2.5 MG, 2/D
     Dates: start: 20080501
  2. PROCYCLIDINE HYDROCHLORIDE 2MG TAB [Concomitant]

REACTIONS (1)
  - EPISTAXIS [None]
